FAERS Safety Report 25796998 (Version 1)
Quarter: 2025Q3

REPORT INFORMATION
  Report Type: Spontaneous
  Country: BR (occurrence: BR)
  Receive Date: 20250912
  Receipt Date: 20250912
  Transmission Date: 20251021
  Serious: Yes (Other)
  Sender: JOHNSON AND JOHNSON
  Company Number: BR-JNJFOC-20250903856

PATIENT

DRUGS (1)
  1. SPORANOX [Suspect]
     Active Substance: ITRACONAZOLE
     Indication: Cutaneous sporotrichosis

REACTIONS (3)
  - Cutaneous sporotrichosis [Unknown]
  - Drug resistance [Unknown]
  - Off label use [Unknown]
